FAERS Safety Report 8405715-6 (Version None)
Quarter: 2012Q2

REPORT INFORMATION
  Report Type: 
  Country: None (occurrence: None)
  Receive Date: 20120604
  Receipt Date: 20120523
  Transmission Date: 20120825
  Serious: Yes (Other)
  Sender: FDA-Public Use
  Company Number: CA-BRISTOL-MYERS SQUIBB COMPANY-13959267

PATIENT
  Age: 59 Year
  Sex: Female

DRUGS (29)
  1. FOSAMAX [Concomitant]
  2. VENTOLIN [Concomitant]
  3. VALIUM [Concomitant]
  4. MS CONTIN [Concomitant]
  5. ORENCIA [Suspect]
     Indication: POLYARTHRITIS
     Dosage: 13,27JUN,4OT,1,29NV07,3,31JAN,1,27MR,22AR,29MY,26JUN,25JL,21AG,18SP,16OT,15NV,14DC08,25APR12,INF:64
     Route: 042
     Dates: start: 20070613
  6. MENOSENSE [Suspect]
     Indication: MENOPAUSAL SYMPTOMS
  7. MICARDIS HCT [Concomitant]
  8. NORVASC [Concomitant]
  9. ORACORT [Concomitant]
  10. FLEXERIL [Concomitant]
  11. ATROVENT [Concomitant]
  12. DILAUDID [Concomitant]
  13. ALDARA [Concomitant]
  14. TRAZODONE HCL [Concomitant]
  15. NEXIUM [Concomitant]
  16. ATARAX [Concomitant]
  17. DALMANE [Concomitant]
  18. SEROQUEL [Concomitant]
  19. HYDRODIURIL [Concomitant]
  20. TRILEPTAL [Concomitant]
  21. PULMICORT [Concomitant]
  22. FUCIDINE CAP [Concomitant]
     Dosage: FUCIDIN H CREAM
  23. ORENCIA [Suspect]
     Indication: JUVENILE ARTHRITIS
     Dosage: 13,27JUN,4OT,1,29NV07,3,31JAN,1,27MR,22AR,29MY,26JUN,25JL,21AG,18SP,16OT,15NV,14DC08,25APR12,INF:64
     Route: 042
     Dates: start: 20070613
  24. ORENCIA [Suspect]
     Indication: RHEUMATOID ARTHRITIS
     Dosage: 13,27JUN,4OT,1,29NV07,3,31JAN,1,27MR,22AR,29MY,26JUN,25JL,21AG,18SP,16OT,15NV,14DC08,25APR12,INF:64
     Route: 042
     Dates: start: 20070613
  25. PLAQUENIL [Concomitant]
     Dosage: 1 TAB ALTERNATE WITH 2 TABS DAILY.
  26. IMURAN [Concomitant]
  27. PROTOPIC [Concomitant]
     Dosage: PROTOPIC 0.1%
  28. FLOVENT [Concomitant]
  29. HYDROMORPHONE HCL [Concomitant]

REACTIONS (24)
  - RASH [None]
  - EAR INFECTION [None]
  - FINGER DEFORMITY [None]
  - BLOOD PRESSURE INCREASED [None]
  - ARTHRALGIA [None]
  - BASAL CELL CARCINOMA [None]
  - TOE OPERATION [None]
  - PYODERMA GANGRENOSUM [None]
  - JOINT SWELLING [None]
  - WEIGHT DECREASED [None]
  - PNEUMONIA [None]
  - PULMONARY FIBROSIS [None]
  - THIRST [None]
  - BLOOD SODIUM DECREASED [None]
  - ACTIVITIES OF DAILY LIVING IMPAIRED [None]
  - HEART RATE INCREASED [None]
  - THERAPEUTIC RESPONSE DECREASED [None]
  - STOMATITIS [None]
  - DRUG DOSE OMISSION [None]
  - DYSPNOEA [None]
  - POSTOPERATIVE WOUND INFECTION [None]
  - DERMATITIS CONTACT [None]
  - PSYCHOMOTOR HYPERACTIVITY [None]
  - ABNORMAL LOSS OF WEIGHT [None]
